FAERS Safety Report 24967540 (Version 1)
Quarter: 2025Q1

REPORT INFORMATION
  Report Type: Spontaneous
  Country: GB (occurrence: GB)
  Receive Date: 20250214
  Receipt Date: 20250214
  Transmission Date: 20250409
  Serious: Yes (Other)
  Sender: BOEHRINGER INGELHEIM
  Company Number: GB-BoehringerIngelheim-2025-BI-007761

PATIENT
  Age: 69 Year

DRUGS (2)
  1. NEVIRAPINE [Suspect]
     Active Substance: NEVIRAPINE
     Indication: HIV infection
  2. NEVIRAPINE [Suspect]
     Active Substance: NEVIRAPINE
     Indication: Hepatitis C

REACTIONS (2)
  - Near death experience [Unknown]
  - Intentional product use issue [Unknown]
